FAERS Safety Report 20084990 (Version 1)
Quarter: 2021Q4

REPORT INFORMATION
  Report Type: Spontaneous
  Country: US (occurrence: None)
  Receive Date: 20211118
  Receipt Date: 20211118
  Transmission Date: 20220304
  Serious: No
  Sender: FDA-Public Use
  Company Number: US-Merck Healthcare KGaA-9280526

PATIENT
  Age: 66 Year
  Sex: Female
  Weight: 63 kg

DRUGS (15)
  1. REBIF [Suspect]
     Active Substance: INTERFERON BETA-1A
     Indication: Multiple sclerosis
     Route: 058
     Dates: start: 2014
  2. AMLODIPINE [Concomitant]
     Active Substance: AMLODIPINE BESYLATE
     Indication: Product used for unknown indication
  3. VALSARTAN [Concomitant]
     Active Substance: VALSARTAN
     Indication: Product used for unknown indication
  4. PLAVIX [Concomitant]
     Active Substance: CLOPIDOGREL BISULFATE
     Indication: Product used for unknown indication
  5. POTASSIUM [Concomitant]
     Active Substance: POTASSIUM
     Indication: Product used for unknown indication
  6. POTASSIUM CHLORIDE [Concomitant]
     Active Substance: POTASSIUM CHLORIDE
     Indication: Product used for unknown indication
  7. PROMETHAZINE [Concomitant]
     Active Substance: PROMETHAZINE HYDROCHLORIDE
     Indication: Product used for unknown indication
  8. DOCUSATE SODIUM [Concomitant]
     Active Substance: DOCUSATE SODIUM
     Indication: Product used for unknown indication
  9. CARVEDILOL [Concomitant]
     Active Substance: CARVEDILOL
     Indication: Product used for unknown indication
  10. CEPHALEXIN [Concomitant]
     Active Substance: CEPHALEXIN
     Indication: Product used for unknown indication
  11. PREVACID [Concomitant]
     Active Substance: LANSOPRAZOLE
     Indication: Product used for unknown indication
  12. ATIVAN [Concomitant]
     Active Substance: LORAZEPAM
     Indication: Product used for unknown indication
  13. MELATONIN [Concomitant]
     Active Substance: MELATONIN
     Indication: Product used for unknown indication
  14. PRAVASTATIN [Concomitant]
     Active Substance: PRAVASTATIN
     Indication: Product used for unknown indication
  15. ONDANSETRON [Concomitant]
     Active Substance: ONDANSETRON
     Indication: Product used for unknown indication

REACTIONS (52)
  - Female reproductive tract disorder [Unknown]
  - Blister [Unknown]
  - Fluid retention [Unknown]
  - Weight increased [Unknown]
  - Decreased appetite [Unknown]
  - Diarrhoea [Unknown]
  - Abdominal pain upper [Unknown]
  - Hunger [Unknown]
  - Weight decreased [Unknown]
  - Weight abnormal [Unknown]
  - Abnormal faeces [Unknown]
  - Extrasystoles [Unknown]
  - Gastritis [Unknown]
  - Abdominal distension [Unknown]
  - Disturbance in attention [Unknown]
  - Functional gastrointestinal disorder [Unknown]
  - Bradyphrenia [Unknown]
  - Gait inability [Unknown]
  - Dizziness [Unknown]
  - Thinking abnormal [Unknown]
  - Asthenia [Unknown]
  - Illness [Unknown]
  - Muscle spasticity [Unknown]
  - Sluggishness [Unknown]
  - Anxiety [Unknown]
  - Emotional disorder [Unknown]
  - Panic attack [Unknown]
  - Chest discomfort [Unknown]
  - Malaise [Unknown]
  - Loss of personal independence in daily activities [Unknown]
  - Stress [Unknown]
  - Gastrointestinal motility disorder [Unknown]
  - Poor quality sleep [Unknown]
  - Chest pain [Unknown]
  - Amnesia [Unknown]
  - Visual impairment [Unknown]
  - Head discomfort [Unknown]
  - Memory impairment [Unknown]
  - Fall [Unknown]
  - Peripheral swelling [Unknown]
  - Vision blurred [Unknown]
  - Muscle spasms [Unknown]
  - Sleep terror [Unknown]
  - Urinary tract infection [Unknown]
  - Pain in extremity [Unknown]
  - Burning sensation [Unknown]
  - Hypoaesthesia [Unknown]
  - Nausea [Unknown]
  - Paraesthesia [Unknown]
  - Fatigue [Unknown]
  - Rash [Unknown]
  - Depression [Unknown]

NARRATIVE: CASE EVENT DATE: 20160201
